FAERS Safety Report 7068219-1 (Version None)
Quarter: 2010Q4

REPORT INFORMATION
  Report Type: 
  Country: None (occurrence: None)
  Receive Date: 20101027
  Receipt Date: 20101027
  Transmission Date: 20110411
  Serious: Yes (Hospitalization)
  Sender: FDA-Public Use
  Company Number: None

PATIENT
  Age: 60 Year
  Sex: Female
  Weight: 65.7716 kg

DRUGS (1)
  1. ACTONEL [Suspect]
     Indication: OSTEOPENIA
     Dosage: 35 MG PO
     Route: 048
     Dates: start: 20020101, end: 20101019

REACTIONS (3)
  - BLOOD CALCIUM INCREASED [None]
  - CHEST PAIN [None]
  - DYSPNOEA [None]
